FAERS Safety Report 10341103 (Version 1)
Quarter: 2014Q3

REPORT INFORMATION
  Report Type: Spontaneous
  Country: US (occurrence: US)
  Receive Date: 20140724
  Receipt Date: 20140724
  Transmission Date: 20150326
  Serious: No
  Sender: FDA-Public Use
  Company Number: US-MYLANLABS-2014S1008314

PATIENT
  Age: 95 Year
  Sex: Male

DRUGS (3)
  1. LEVOTHYROXINE SODIUM TABLETS, USP [Suspect]
     Active Substance: LEVOTHYROXINE SODIUM
     Indication: HYPOTHYROIDISM
     Route: 048
  2. LASIX [Concomitant]
     Active Substance: FUROSEMIDE
  3. ASA [Concomitant]
     Active Substance: ASPIRIN

REACTIONS (3)
  - Peripheral swelling [Not Recovered/Not Resolved]
  - Abnormal dreams [Recovered/Resolved]
  - Decreased appetite [Recovered/Resolved]

NARRATIVE: CASE EVENT DATE: 20140307
